FAERS Safety Report 7220687-8 (Version None)
Quarter: 2011Q1

REPORT INFORMATION
  Report Type: 
  Country: None (occurrence: None)
  Receive Date: 20110111
  Receipt Date: 20110105
  Transmission Date: 20110831
  Serious: Yes (Other)
  Sender: FDA-Public Use
  Company Number: US-RB-018385-10

PATIENT
  Age: 47 Year
  Sex: Male

DRUGS (1)
  1. SUBOXONE [Suspect]
     Indication: PRODUCT USED FOR UNKNOWN INDICATION
     Dosage: DOSING INFORMATION UNKNOWN
     Route: 060

REACTIONS (5)
  - HEADACHE [None]
  - BRAIN OEDEMA [None]
  - TRANSIENT ISCHAEMIC ATTACK [None]
  - MIGRAINE [None]
  - CHEST PAIN [None]
